FAERS Safety Report 22923085 (Version 2)
Quarter: 2023Q4

REPORT INFORMATION
  Report Type: Spontaneous
  Country: AT (occurrence: AT)
  Receive Date: 20230908
  Receipt Date: 20231115
  Transmission Date: 20240109
  Serious: Yes (Hospitalization)
  Sender: FDA-Public Use
  Company Number: AT-002147023-NVSC2023AT193309

PATIENT
  Sex: Male

DRUGS (1)
  1. KESIMPTA [Suspect]
     Active Substance: OFATUMUMAB
     Indication: Product used for unknown indication
     Dosage: UNK, (IN THE BEGINNING OF AUGUST (BEFORE THAT NO THERAPY))
     Route: 065
     Dates: start: 202308

REACTIONS (1)
  - Multiple sclerosis relapse [Unknown]
